FAERS Safety Report 25701319 (Version 1)
Quarter: 2025Q3

REPORT INFORMATION
  Report Type: Spontaneous
  Country: US (occurrence: US)
  Receive Date: 20250819
  Receipt Date: 20250819
  Transmission Date: 20251020
  Serious: No
  Sender: BRISTOL-MYERS SQUIBB COMPANY
  Company Number: US-BRISTOL-MYERS SQUIBB COMPANY-2025-114903

PATIENT
  Age: 47 Year
  Sex: Male

DRUGS (3)
  1. COBENFY [Suspect]
     Active Substance: TROSPIUM CHLORIDE\XANOMELINE
     Indication: Schizophrenia
     Dosage: 100MG/20MG
     Route: 048
     Dates: start: 20250220, end: 20250521
  2. COBENFY [Suspect]
     Active Substance: TROSPIUM CHLORIDE\XANOMELINE
     Dosage: 100MG/20MG
     Route: 048
     Dates: start: 20250522, end: 20250717
  3. COBENFY [Suspect]
     Active Substance: TROSPIUM CHLORIDE\XANOMELINE
     Dosage: 125MG/30MG
     Route: 048

REACTIONS (3)
  - Abdominal pain upper [Recovered/Resolved]
  - Constipation [Recovered/Resolved]
  - Dry mouth [Recovered/Resolved]

NARRATIVE: CASE EVENT DATE: 20250224
